FAERS Safety Report 5729076-6 (Version None)
Quarter: 2008Q2

REPORT INFORMATION
  Report Type: 
  Country: None (occurrence: None)
  Receive Date: 20080506
  Receipt Date: 20080424
  Transmission Date: 20081010
  Serious: Yes (Other)
  Sender: FDA-Public Use
  Company Number: US-PFIZER INC-2007107262

PATIENT
  Sex: Male
  Weight: 108.9 kg

DRUGS (22)
  1. LYRICA [Suspect]
     Indication: DIABETIC NEUROPATHY
     Route: 048
  2. LYRICA [Suspect]
     Indication: PHANTOM PAIN
  3. NEURONTIN [Suspect]
     Indication: NEURALGIA
     Dates: start: 19930101, end: 19930101
  4. VIAGRA [Suspect]
     Indication: ERECTILE DYSFUNCTION
  5. ZONEGRAN [Suspect]
     Indication: NEURALGIA
  6. NYQUIL [Concomitant]
     Dates: start: 20080101, end: 20080101
  7. ALL OTHER THERAPEUTIC PRODUCTS [Concomitant]
     Dates: start: 20071201, end: 20071201
  8. LANTUS [Concomitant]
     Route: 058
  9. INSULIN [Concomitant]
  10. ACETYLSALICYLIC ACID SRT [Concomitant]
  11. BACLOFEN [Concomitant]
  12. SOMA [Concomitant]
  13. PERCOCET [Concomitant]
  14. OXYCONTIN [Concomitant]
  15. VALIUM [Concomitant]
  16. METFORMIN HCL [Concomitant]
  17. LISINOPRIL [Concomitant]
  18. FERROUS SULFATE TAB [Concomitant]
  19. OMEPRAZOLE [Concomitant]
  20. PRAVASTATIN [Concomitant]
  21. METOPROLOL TARTRATE [Concomitant]
  22. TYLENOL [Concomitant]

REACTIONS (6)
  - INFECTION [None]
  - INJURY [None]
  - LACK OF SPONTANEOUS SPEECH [None]
  - SUICIDAL IDEATION [None]
  - VISION BLURRED [None]
  - WEIGHT INCREASED [None]
